FAERS Safety Report 6065600-4 (Version None)
Quarter: 2009Q1

REPORT INFORMATION
  Report Type: 
  Country: None (occurrence: None)
  Receive Date: 20090204
  Receipt Date: 20090130
  Transmission Date: 20090719
  Serious: Yes (Death)
  Sender: FDA-Public Use
  Company Number: ES-B.I. PHARMACEUTICALS,INC./RIDGEFIELD-2009-DE-01099GD

PATIENT
  Age: 67 Year
  Sex: Male

DRUGS (2)
  1. DIPYRIDAMOLE [Suspect]
     Indication: PULMONARY HYPERTENSION
     Dosage: 400MG
  2. NITRIC OXIDE [Concomitant]
     Indication: PULMONARY HYPERTENSION
     Route: 055

REACTIONS (2)
  - DRUG INEFFECTIVE [None]
  - RIGHT VENTRICULAR FAILURE [None]
